FAERS Safety Report 9807431 (Version 4)
Quarter: 2014Q2

REPORT INFORMATION
  Report Type: Spontaneous
  Country: US (occurrence: US)
  Receive Date: 20140110
  Receipt Date: 20140408
  Transmission Date: 20141212
  Serious: Yes (Other)
  Sender: FDA-Public Use
  Company Number: US-PFIZER INC-2014003266

PATIENT
  Age: 54 Year
  Sex: Female

DRUGS (22)
  1. XELJANZ [Suspect]
     Indication: RHEUMATOID ARTHRITIS
     Dosage: 5 MG, 2X/DAY
     Route: 048
     Dates: start: 201312
  2. ORENCIA [Concomitant]
     Dosage: 125 MG, WEEKLY
  3. ARAVA [Concomitant]
     Dosage: 20 MG, DAILY
  4. PLAQUENIL [Concomitant]
     Dosage: 200 MG, 2X/DAY
  5. ARMOUR THYROID [Concomitant]
     Dosage: UNK
  6. BETAINE [Concomitant]
     Dosage: UNK
  7. DHEA [Concomitant]
     Dosage: UNK
  8. ESTROGEN [Concomitant]
     Dosage: UNK
  9. LUGOL^S SOLUTION [Concomitant]
  10. MAGNESIUM [Concomitant]
  11. MELATONIN [Concomitant]
     Dosage: UNK
  12. PROMETRIUM [Concomitant]
     Dosage: UNK
  13. OMEGA 3 [Concomitant]
     Dosage: UNK
  14. TESTOSTERONE [Concomitant]
     Dosage: UNK
  15. TRYPTOPHAN [Concomitant]
     Indication: INSOMNIA
     Dosage: UNK
  16. VITAMIN C [Concomitant]
     Dosage: UNK
  17. VITAMIN D [Concomitant]
     Dosage: UNK
  18. FIBER [Concomitant]
  19. KRILL OIL [Concomitant]
  20. PROBIOTICS [Concomitant]
     Dosage: UNK
  21. CUMIN [Concomitant]
  22. CURCUMIN [Concomitant]

REACTIONS (2)
  - Tooth abscess [Unknown]
  - Pain in jaw [Unknown]
